FAERS Safety Report 18039507 (Version 2)
Quarter: 2020Q3

REPORT INFORMATION
  Report Type: Report from Study
  Country: None (occurrence: DE)
  Receive Date: 20200717
  Receipt Date: 20200720
  Transmission Date: 20201103
  Serious: Yes (Other)
  Sender: FDA-Public Use
  Company Number: DE-ABBVIE-19K-062-2728527-00

PATIENT
  Sex: Male
  Weight: 80 kg

DRUGS (3)
  1. HUMIRA [Suspect]
     Active Substance: ADALIMUMAB
     Indication: COLITIS ULCERATIVE
     Route: 058
     Dates: start: 201901, end: 201908
  2. CORTISON [Concomitant]
     Active Substance: CORTISONE ACETATE
     Indication: PRODUCT USED FOR UNKNOWN INDICATION
  3. ATORVASTATIN [Concomitant]
     Active Substance: ATORVASTATIN
     Indication: BLOOD CHOLESTEROL INCREASED
     Route: 048

REACTIONS (10)
  - Drug ineffective [Recovered/Resolved]
  - Gastrointestinal haemorrhage [Recovering/Resolving]
  - Listless [Not Recovered/Not Resolved]
  - Haemorrhage [Recovered/Resolved]
  - Colitis ulcerative [Recovered/Resolved with Sequelae]
  - Colitis ulcerative [Unknown]
  - Pain [Unknown]
  - Ulcer [Unknown]
  - Haemorrhage [Unknown]
  - Gastrointestinal disorder [Unknown]

NARRATIVE: CASE EVENT DATE: 2019
